FAERS Safety Report 7496096-3 (Version None)
Quarter: 2011Q2

REPORT INFORMATION
  Report Type: 
  Country: None (occurrence: None)
  Receive Date: 20110523
  Receipt Date: 20110518
  Transmission Date: 20111010
  Serious: Yes (Other)
  Sender: FDA-Public Use
  Company Number: US-AMGEN-USASP2011026019

PATIENT
  Sex: Male
  Weight: 90 kg

DRUGS (2)
  1. NPLATE [Suspect]
     Indication: IDIOPATHIC THROMBOCYTOPENIC PURPURA
     Dosage: 300 A?G, UNK
     Dates: start: 20091029, end: 20100329
  2. CORTICOSTEROIDS [Concomitant]

REACTIONS (1)
  - PRIMARY EFFUSION LYMPHOMA [None]
